FAERS Safety Report 4519664-7 (Version None)
Quarter: 2004Q4

REPORT INFORMATION
  Report Type: 
  Country: None (occurrence: None)
  Receive Date: 20041206
  Receipt Date: 20041119
  Transmission Date: 20050328
  Serious: Yes (Other)
  Sender: FDA-Public Use
  Company Number: PHBS2004CA15740

PATIENT
  Age: 37 Year
  Sex: Female

DRUGS (6)
  1. INFLUENZA VACCINE [Concomitant]
  2. FEMARA [Concomitant]
     Dosage: 2.5 MG, QD
     Route: 048
     Dates: start: 20040801
  3. GOSERELIN ACETATE [Concomitant]
     Route: 065
  4. MORPHINE [Concomitant]
     Dosage: 10 MG, QD
     Route: 048
  5. CHEMOTHERAPEUTICS,OTHER [Concomitant]
     Dates: end: 20040501
  6. AREDIA [Suspect]
     Dosage: UNK, UNK
     Dates: start: 20040101

REACTIONS (4)
  - EYELID OEDEMA [None]
  - LACRIMATION INCREASED [None]
  - RASH [None]
  - SWELLING FACE [None]
